FAERS Safety Report 20445095 (Version 1)
Quarter: 2022Q1

REPORT INFORMATION
  Report Type: Spontaneous
  Country: PK (occurrence: PK)
  Receive Date: 20220208
  Receipt Date: 20220208
  Transmission Date: 20220424
  Serious: Yes (Other)
  Sender: FDA-Public Use
  Company Number: PK-ELI_LILLY_AND_COMPANY-PK202101006975

PATIENT
  Age: 26 Year
  Sex: Female

DRUGS (1)
  1. TERIPARATIDE [Suspect]
     Active Substance: TERIPARATIDE
     Indication: Bone disorder
     Dosage: UNK UNK, UNKNOWN
     Route: 065

REACTIONS (3)
  - Arthritis [Unknown]
  - Off label use [Unknown]
  - Product dose omission issue [Unknown]
